FAERS Safety Report 12675884 (Version 1)
Quarter: 2016Q3

REPORT INFORMATION
  Report Type: Spontaneous
  Country: US (occurrence: None)
  Receive Date: 20160822
  Receipt Date: 20160822
  Transmission Date: 20161109
  Serious: No
  Sender: FDA-Public Use
  Company Number: None

PATIENT
  Age: 68 Year
  Sex: Female
  Weight: 70.31 kg

DRUGS (9)
  1. VOLTAREN [Concomitant]
     Active Substance: DICLOFENAC SODIUM
  2. ATENOLOL. [Concomitant]
     Active Substance: ATENOLOL
  3. WARFARIN EXELAN [Suspect]
     Active Substance: WARFARIN
     Indication: THROMBOSIS
     Dosage: 2 TABLET(S) DAILY OR AS DIRECTED TAKEN BY MOUTH
     Route: 048
     Dates: start: 20160715
  4. CALCIUM [Concomitant]
     Active Substance: CALCIUM
  5. TRAMADOL. [Concomitant]
     Active Substance: TRAMADOL
  6. SYNTHROID [Concomitant]
     Active Substance: LEVOTHYROXINE SODIUM
  7. PROZAC [Concomitant]
     Active Substance: FLUOXETINE HYDROCHLORIDE
  8. VITAMIN D [Concomitant]
     Active Substance: CHOLECALCIFEROL
  9. POTASSIUM [Concomitant]
     Active Substance: POTASSIUM

REACTIONS (3)
  - Arthralgia [None]
  - Activities of daily living impaired [None]
  - Osteoarthritis [None]

NARRATIVE: CASE EVENT DATE: 20160715
